FAERS Safety Report 4670423-4 (Version None)
Quarter: 2005Q2

REPORT INFORMATION
  Report Type: 
  Country: None (occurrence: None)
  Receive Date: 20050523
  Receipt Date: 20050504
  Transmission Date: 20051028
  Serious: No
  Sender: FDA-Public Use
  Company Number: 29921

PATIENT
  Age: 40 Year
  Sex: Female

DRUGS (8)
  1. TRAVOPROST 0.004% SOLUTION (BATCH #: B04F08N) [Suspect]
     Indication: OCULAR HYPERTENSION
     Dosage: 1 GTT OU HS
     Route: 047
     Dates: start: 20020924, end: 20041129
  2. PIOGLITAZONE HCL [Concomitant]
  3. METFORMIN [Concomitant]
  4. BENFLUOREX HYDROCHLORIDE [Concomitant]
  5. PARACETAMOL/TRAMADOL [Concomitant]
  6. THIOCOCHICOSIDE [Concomitant]
  7. CLOBAZAM [Concomitant]
  8. CERAZETTE [Concomitant]

REACTIONS (16)
  - ANGLE CLOSURE GLAUCOMA [None]
  - ASTHENOPIA [None]
  - DIZZINESS [None]
  - DYSPNOEA [None]
  - EYE PAIN [None]
  - EYE PRURITUS [None]
  - FATIGUE [None]
  - FEELING ABNORMAL [None]
  - FOREIGN BODY SENSATION IN EYES [None]
  - GROWTH OF EYELASHES [None]
  - HEADACHE [None]
  - HYPERTRICHOSIS [None]
  - IRIS HYPERPIGMENTATION [None]
  - LACRIMATION INCREASED [None]
  - PHOTOPHOBIA [None]
  - VISION BLURRED [None]
